FAERS Safety Report 6491152-0 (Version None)
Quarter: 2009Q4

REPORT INFORMATION
  Report Type: 
  Country: None (occurrence: None)
  Receive Date: 20091207
  Receipt Date: 20091123
  Transmission Date: 20100525
  Serious: Yes (Hospitalization)
  Sender: FDA-Public Use
  Company Number: 8055233

PATIENT
  Age: 61 Year
  Sex: Male
  Weight: 92 kg

DRUGS (12)
  1. CERTOLIZUMAB PEGOL [Suspect]
     Indication: RHEUMATOID ARTHRITIS
     Dosage: 400 MG/ M SC
     Route: 058
     Dates: start: 20031209
  2. PREDNISONE [Concomitant]
  3. METHOTREXATE [Concomitant]
  4. FOLIC ACID [Concomitant]
  5. DICLOFENAC [Concomitant]
  6. CALCIUM [Concomitant]
  7. ERGOCALCIFEROL [Concomitant]
  8. CONCOR [Concomitant]
  9. TRITACE [Concomitant]
  10. ANOPYRIN [Concomitant]
  11. SORTIS [Concomitant]
  12. HELICID [Concomitant]

REACTIONS (4)
  - BRONCHOPNEUMONIA [None]
  - HAEMOPTYSIS [None]
  - HYPERLIPIDAEMIA [None]
  - HYPERTENSION [None]
